FAERS Safety Report 6756695-0 (Version None)
Quarter: 2010Q2

REPORT INFORMATION
  Report Type: 
  Country: None (occurrence: None)
  Receive Date: 20100603
  Receipt Date: 20100603
  Transmission Date: 20101027
  Serious: Yes (Life-Threatening, Other)
  Sender: FDA-Public Use
  Company Number: None

PATIENT
  Sex: Male

DRUGS (3)
  1. WELLBUTRIN [Suspect]
     Indication: MAJOR DEPRESSION
     Dosage: 375 MG PO QAM
     Route: 048
     Dates: start: 20090901, end: 20091001
  2. LAMICTAL [Concomitant]
  3. PROZAC [Concomitant]

REACTIONS (3)
  - DEPRESSION [None]
  - PRODUCT SUBSTITUTION ISSUE [None]
  - SUICIDAL IDEATION [None]
